FAERS Safety Report 7315514-4 (Version None)
Quarter: 2011Q1

REPORT INFORMATION
  Report Type: 
  Country: None (occurrence: None)
  Receive Date: 20110225
  Receipt Date: 20110214
  Transmission Date: 20110831
  Serious: Yes (Hospitalization)
  Sender: FDA-Public Use
  Company Number: US-ELI_LILLY_AND_COMPANY-US201102005556

PATIENT
  Sex: Male
  Weight: 78.458 kg

DRUGS (11)
  1. PRASUGREL HYDROCHLORIDE [Suspect]
     Indication: ACUTE CORONARY SYNDROME
     Dosage: 60 MG, ONCE
     Dates: start: 20100729, end: 20100729
  2. CARDURA [Concomitant]
     Indication: HYPERTENSION
     Dosage: 5 MG, DAILY (1/D)
     Route: 048
  3. COREG [Concomitant]
     Dosage: 25 MG, 2/D
     Route: 048
     Dates: start: 20101018
  4. ASPIRIN [Concomitant]
     Dosage: 325 MG, DAILY (1/D)
     Route: 048
     Dates: start: 20100728
  5. PRINIVIL [Concomitant]
     Indication: HYPERTENSION
     Dosage: 5 MG, DAILY (1/D)
     Route: 048
     Dates: start: 20100730
  6. ASPIRIN [Concomitant]
     Dosage: 325 MG, DAILY (1/D)
     Route: 048
     Dates: start: 20100727
  7. RANEXA [Concomitant]
     Indication: CHEST PAIN
     Dosage: 500 MG, 3/D
     Route: 048
     Dates: start: 20101018
  8. ASPIRIN [Concomitant]
     Dosage: 81 MG, DAILY (1/D)
  9. PRINIVIL [Concomitant]
     Dosage: 10 MG, DAILY (1/D)
     Route: 048
     Dates: start: 20100730
  10. PRASUGREL HYDROCHLORIDE [Suspect]
     Dosage: 10 MG, DAILY (1/D)
     Dates: start: 20100729
  11. CRESTOR [Concomitant]
     Indication: BLOOD CHOLESTEROL
     Dosage: 5 MG, DAILY (1/D)
     Route: 048
     Dates: start: 20101229

REACTIONS (1)
  - CHEST PAIN [None]
